FAERS Safety Report 18256686 (Version 1)
Quarter: 2020Q3

REPORT INFORMATION
  Report Type: Spontaneous
  Country: CA (occurrence: CA)
  Receive Date: 20200911
  Receipt Date: 20200911
  Transmission Date: 20201103
  Serious: Yes (Other)
  Sender: FDA-Public Use
  Company Number: CA-ACCORD-200260

PATIENT
  Age: 84 Year
  Sex: Male

DRUGS (2)
  1. HYDROXYCHLOROQUINE [Concomitant]
     Active Substance: HYDROXYCHLOROQUINE
     Dosage: EVERY 1 DAYS
  2. METHOTREXATE. [Suspect]
     Active Substance: METHOTREXATE
     Indication: PRODUCT USED FOR UNKNOWN INDICATION
     Dosage: 1 EVERY 1 WEEKS

REACTIONS (3)
  - Nausea [Unknown]
  - Abdominal discomfort [Unknown]
  - Hypoacusis [Unknown]
